FAERS Safety Report 5205282-4 (Version None)
Quarter: 2007Q1

REPORT INFORMATION
  Report Type: 
  Country: None (occurrence: None)
  Receive Date: 20070110
  Receipt Date: 20070102
  Transmission Date: 20070707
  Serious: Yes (Hospitalization, Other)
  Sender: FDA-Public Use
  Company Number: US-PFIZER INC-2007001820

PATIENT
  Sex: Male
  Weight: 98 kg

DRUGS (1)
  1. CELEBREX [Suspect]
     Indication: POLYARTHRITIS

REACTIONS (4)
  - ACTIVITIES OF DAILY LIVING IMPAIRED [None]
  - DEPRESSION [None]
  - INSOMNIA [None]
  - MYOCARDIAL INFARCTION [None]
